FAERS Safety Report 5786666-2 (Version None)
Quarter: 2008Q2

REPORT INFORMATION
  Report Type: 
  Country: None (occurrence: None)
  Receive Date: 20080618
  Receipt Date: 20080605
  Transmission Date: 20081010
  Serious: Yes (Life-Threatening)
  Sender: FDA-Public Use
  Company Number: 85475

PATIENT
  Age: 65 Year
  Sex: Male
  Weight: 98.2 kg

DRUGS (5)
  1. NAPROXEN [Suspect]
     Indication: PAIN
     Dosage: 500MG/ORAL
     Route: 048
     Dates: start: 20080510, end: 20080510
  2. ASPIRIN [Concomitant]
  3. ATENOLOL [Concomitant]
  4. BENDROFLUMETHIAZIDE (BENDROFLUAZIDE) [Concomitant]
  5. ISMN (ISOSORBIDE) [Concomitant]

REACTIONS (1)
  - ANAPHYLACTIC REACTION [None]
